FAERS Safety Report 7484936-3 (Version None)
Quarter: 2011Q2

REPORT INFORMATION
  Report Type: 
  Country: None (occurrence: None)
  Receive Date: 20110517
  Receipt Date: 20110510
  Transmission Date: 20111010
  Serious: Yes (Other)
  Sender: FDA-Public Use
  Company Number: B0719488A

PATIENT
  Age: 41 Year
  Sex: Male

DRUGS (3)
  1. LAMIVUDINE [Suspect]
     Dosage: 300MG PER DAY
     Route: 048
  2. NEVIRAPINE [Suspect]
     Dosage: 200MG PER DAY
     Route: 048
  3. STAVUDINE [Suspect]
     Dosage: 60MG PER DAY
     Route: 048

REACTIONS (1)
  - STEVENS-JOHNSON SYNDROME [None]
